FAERS Safety Report 4386103-9 (Version None)
Quarter: 2004Q2

REPORT INFORMATION
  Report Type: 
  Country: None (occurrence: None)
  Receive Date: 20040625
  Receipt Date: 20040625
  Transmission Date: 20050107
  Serious: Yes (Death)
  Sender: FDA-Public Use
  Company Number: None

PATIENT
  Age: 48 Year
  Sex: Male
  Weight: 83.9154 kg

DRUGS (11)
  1. AMIODARONE HCL [Suspect]
     Indication: ATRIAL FIBRILLATION
     Dosage: INTRAVENOUS
     Route: 042
     Dates: start: 20031203, end: 20031208
  2. AMIODARONE HCL [Suspect]
     Indication: ATRIAL FIBRILLATION
     Dosage: 400 AM DAILY ORAL
     Route: 048
     Dates: start: 20031208, end: 20031217
  3. PANTOPRAZOLE [Concomitant]
  4. SYNTHROID [Concomitant]
  5. POTASSIUM CHLORIDE [Concomitant]
  6. AMIODARONE HCL [Concomitant]
  7. COUMADIN [Concomitant]
  8. WARFARIN SODIUM [Concomitant]
  9. METOPROLOL/LOPRESSOR [Concomitant]
  10. FUROSEMIDE [Concomitant]
  11. OXYCODONE AND ACETAMINOPHEN [Concomitant]

REACTIONS (12)
  - ASTHENIA [None]
  - DRUG TOXICITY [None]
  - FALL [None]
  - HEART VALVE REPLACEMENT [None]
  - HEPATIC FAILURE [None]
  - HEPATIC NECROSIS [None]
  - HYPOTENSION [None]
  - INFLUENZA [None]
  - ISCHAEMIC HEPATITIS [None]
  - POST PROCEDURAL COMPLICATION [None]
  - RENAL FUNCTION TEST ABNORMAL [None]
  - VASCULAR BYPASS GRAFT [None]
